FAERS Safety Report 13651060 (Version 2)
Quarter: 2017Q2

REPORT INFORMATION
  Report Type: Spontaneous
  Country: BR (occurrence: BR)
  Receive Date: 20170614
  Receipt Date: 20170619
  Transmission Date: 20170830
  Serious: Yes (Hospitalization, Other)
  Sender: FDA-Public Use
  Company Number: BR-009507513-1706BRA003035

PATIENT
  Sex: Male
  Weight: 70 kg

DRUGS (11)
  1. TEMODAL [Suspect]
     Active Substance: TEMOZOLOMIDE
     Indication: CHEMOTHERAPY
  2. LOSARTAN POTASSIUM. [Concomitant]
     Active Substance: LOSARTAN POTASSIUM
     Indication: BLOOD PRESSURE MANAGEMENT
     Dosage: 50 MG (1 TABLET) IN THE MORNING
     Route: 048
     Dates: start: 201606
  3. TEMODAL [Suspect]
     Active Substance: TEMOZOLOMIDE
     Indication: CHEMOTHERAPY
  4. TEMODAL [Suspect]
     Active Substance: TEMOZOLOMIDE
     Indication: GLIOBLASTOMA
     Dosage: 140 MG (1 CAPSULE) DAILY FOR 21 DAYS
     Route: 048
  5. HIDANTAL [Concomitant]
     Active Substance: PHENYTOIN SODIUM
     Indication: CONVULSION PROPHYLAXIS
     Dosage: 100 MG (1 TABLET) 4 TIMES PER DAY
     Route: 048
     Dates: start: 20161126
  6. OMEPRAZOLE. [Concomitant]
     Active Substance: OMEPRAZOLE
     Indication: PROPHYLAXIS AGAINST GASTROINTESTINAL ULCER
     Dosage: 20 MG (1 TABLET) DAILY IN FASTING
     Route: 048
     Dates: start: 20161126
  7. TEGRETOL [Concomitant]
     Active Substance: CARBAMAZEPINE
     Indication: CONVULSION PROPHYLAXIS
     Dosage: 100 MG (1 TABLET) 3 TIMES PER DAY
     Route: 048
     Dates: start: 20170405
  8. DEPAKOTE [Concomitant]
     Active Substance: DIVALPROEX SODIUM
     Indication: CONVULSION PROPHYLAXIS
     Dosage: 500 MG (1 TABLET) EVERY 12 HOURS
     Route: 048
     Dates: start: 201606
  9. TEMODAL [Suspect]
     Active Substance: TEMOZOLOMIDE
     Indication: GLIOBLASTOMA
     Dosage: 360 MG (2 CAPSULES) DAILY FOR 5 DAYS EACH 21 DAYS
     Route: 048
  10. NEBILET [Concomitant]
     Active Substance: NEBIVOLOL
     Indication: BLOOD PRESSURE MANAGEMENT
     Dosage: 5 MG (1 TABLET) IN THE EVENING
     Route: 048
     Dates: start: 201606
  11. DECADRON [Concomitant]
     Active Substance: DEXAMETHASONE
     Indication: CEREBRAL DISORDER
     Dosage: 4 MG (1 TABLET) 4 TIMES A DAY
     Route: 048
     Dates: start: 20161126

REACTIONS (4)
  - Glioblastoma [Recovered/Resolved]
  - Off label use [Unknown]
  - Vomiting [Not Recovered/Not Resolved]
  - Dysphagia [Not Recovered/Not Resolved]

NARRATIVE: CASE EVENT DATE: 20170207
